FAERS Safety Report 11223439 (Version 2)
Quarter: 2015Q3

REPORT INFORMATION
  Report Type: Spontaneous
  Country: US (occurrence: US)
  Receive Date: 20150628
  Receipt Date: 20150813
  Transmission Date: 20151125
  Serious: No
  Sender: FDA-Public Use
  Company Number: US-TEVA-574045USA

PATIENT

DRUGS (2)
  1. TREANDA [Suspect]
     Active Substance: BENDAMUSTINE HYDROCHLORIDE
     Route: 042
  2. TEVADAPTOR DEVICE [Suspect]
     Active Substance: DEVICE
     Route: 065

REACTIONS (3)
  - Exposure via contaminated device [Unknown]
  - Device leakage [Unknown]
  - Wrong technique in product usage process [Unknown]
